FAERS Safety Report 5408010-2 (Version None)
Quarter: 2007Q3

REPORT INFORMATION
  Report Type: 
  Country: None (occurrence: None)
  Receive Date: 20070730
  Receipt Date: 20070712
  Transmission Date: 20080115
  Serious: No
  Sender: FDA-Public Use
  Company Number: 2007-161202-NL

PATIENT
  Age: 40 Year
  Sex: Female

DRUGS (1)
  1. TICE BCG [Suspect]
     Indication: BLADDER TRANSITIONAL CELL CARCINOMA
     Dosage: INTRAVESICAL
     Route: 043
     Dates: start: 20020101, end: 20020401

REACTIONS (8)
  - BLADDER DISORDER [None]
  - BLADDER GRANULOMA [None]
  - BLADDER MASS [None]
  - CYSTITIS NONINFECTIVE [None]
  - DYSURIA [None]
  - HAEMATURIA [None]
  - MICTURITION URGENCY [None]
  - RASH PRURITIC [None]
